FAERS Safety Report 15855535 (Version 1)
Quarter: 2019Q1

REPORT INFORMATION
  Report Type: Spontaneous
  Country: AU (occurrence: AU)
  Receive Date: 20190122
  Receipt Date: 20190122
  Transmission Date: 20190417
  Serious: Yes (Other)
  Sender: FDA-Public Use
  Company Number: AU-GE HEALTHCARE LIFE SCIENCES-2019CSU000268

PATIENT

DRUGS (4)
  1. OMNIPAQUE [Suspect]
     Active Substance: IOHEXOL
     Indication: ABDOMINAL PAIN LOWER
  2. OMNIPAQUE [Suspect]
     Active Substance: IOHEXOL
     Indication: COMPUTERISED TOMOGRAM ABDOMEN
  3. OMNIPAQUE [Suspect]
     Active Substance: IOHEXOL
     Indication: COMPUTERISED TOMOGRAM PELVIS
     Dosage: 70 ML, SINGLE
     Route: 042
     Dates: start: 20190115, end: 20190115
  4. OMNIPAQUE [Suspect]
     Active Substance: IOHEXOL
     Indication: ABDOMINAL PAIN UPPER

REACTIONS (4)
  - Dyspnoea [Recovered/Resolved]
  - Sinus congestion [Recovered/Resolved]
  - Sneezing [Recovered/Resolved]
  - Lacrimation increased [Recovered/Resolved]

NARRATIVE: CASE EVENT DATE: 20190115
